FAERS Safety Report 7074548-8 (Version None)
Quarter: 2010Q4

REPORT INFORMATION
  Report Type: 
  Country: None (occurrence: None)
  Receive Date: 20101021
  Receipt Date: 20101014
  Transmission Date: 20110411
  Serious: Yes (Hospitalization)
  Sender: FDA-Public Use
  Company Number: SP03184

PATIENT
  Age: 60 Year
  Sex: Female

DRUGS (3)
  1. MOVIPREP [Suspect]
     Indication: BOWEL PREPARATION
     Dosage: ORAL
     Route: 048
  2. VASOTEC [Concomitant]
  3. DYAZIDE [Concomitant]

REACTIONS (5)
  - HEADACHE [None]
  - HYPOKALAEMIA [None]
  - HYPONATRAEMIA [None]
  - LETHARGY [None]
  - NAUSEA [None]
